FAERS Safety Report 8786691 (Version 1)
Quarter: 2012Q4

REPORT INFORMATION
  Report Type: 
  Country: US (occurrence: US)
  Receive Date: 20120914
  Receipt Date: 20120914
  Transmission Date: 20130627
  Serious: No
  Sender: FDA-Public Use
  Company Number: US-BIOGENIDEC-2012BI036694

PATIENT
  Age: 44 Year
  Sex: Female

DRUGS (1)
  1. TYSABRI [Suspect]
     Indication: MULTIPLE SCLEROSIS
     Route: 042
     Dates: start: 20080103

REACTIONS (4)
  - Pain [Recovered/Resolved]
  - Device difficult to use [Recovered/Resolved]
  - Device breakage [Not Recovered/Not Resolved]
  - Central venous catheterisation [Recovered/Resolved]
